FAERS Safety Report 5814470-5 (Version None)
Quarter: 2008Q3

REPORT INFORMATION
  Report Type: 
  Country: None (occurrence: None)
  Receive Date: 20080715
  Receipt Date: 20080702
  Transmission Date: 20090109
  Serious: Yes (Other)
  Sender: FDA-Public Use
  Company Number: DSM-2008-00632

PATIENT
  Age: 44 Year
  Sex: Male

DRUGS (1)
  1. OLMESARTAN MEDOXOMIL [Suspect]
     Indication: HYPERTENSION
     Dosage: 20MG (20 MG, 1 IN 1 D), ORAL
     Route: 048
     Dates: start: 20071223, end: 20080415

REACTIONS (1)
  - ERECTILE DYSFUNCTION [None]
